FAERS Safety Report 7898612-6 (Version None)
Quarter: 2011Q4

REPORT INFORMATION
  Report Type: 
  Country: None (occurrence: None)
  Receive Date: 20111107
  Receipt Date: 20111107
  Transmission Date: 20120403
  Serious: Yes (Hospitalization)
  Sender: FDA-Public Use
  Company Number: None

PATIENT
  Sex: Female
  Weight: 54.884 kg

DRUGS (1)
  1. CYMBALTA [Suspect]
     Indication: FIBROMYALGIA
     Dosage: ONE PILL BY MOUTH
     Route: 048
     Dates: start: 20111102, end: 20111102

REACTIONS (5)
  - FEELING ABNORMAL [None]
  - WRONG DRUG ADMINISTERED [None]
  - DRUG HYPERSENSITIVITY [None]
  - PANIC ATTACK [None]
  - DRUG DISPENSING ERROR [None]
